FAERS Safety Report 8764423 (Version 1)
Quarter: 2012Q4

REPORT INFORMATION
  Report Type: 
  Country: US (occurrence: US)
  Receive Date: 20120831
  Receipt Date: 20120831
  Transmission Date: 20130627
  Serious: Yes (Death)
  Sender: FDA-Public Use
  Company Number: US-B.I. PHARMACEUTICALS,INC./RIDGEFIELD-2012-BP-20969BP

PATIENT
  Sex: Male

DRUGS (9)
  1. PRADAXA [Suspect]
     Indication: ATRIAL FIBRILLATION
     Dosage: 300 mg
     Route: 048
     Dates: end: 201205
  2. XARELTO [Suspect]
     Indication: ATRIAL FIBRILLATION
     Dosage: 20 mg
     Route: 048
  3. XARELTO [Suspect]
     Indication: CEREBROVASCULAR ACCIDENT PROPHYLAXIS
  4. RAMIPRIL (RAMIPRIL) [Concomitant]
     Dosage: 10 mg
     Route: 048
  5. AMLODIPINE (AMLODIPINE) [Concomitant]
     Dosage: 7.5 mg
     Route: 048
  6. CRESTOR (ROSUVASTATIN CALCIUM) [Concomitant]
     Dosage: 10 mg
     Route: 048
  7. ATENOLOL (ATENOLOL) [Concomitant]
     Dosage: 50 mg
     Route: 048
  8. FAMOTIDINE (FAMOTIDINE) [Concomitant]
     Dosage: 40 mg
     Route: 048
  9. CALCIUM AND VITAMIN D3 (LEKOVIT CA) [Concomitant]

REACTIONS (3)
  - Cerebral haemorrhage [Fatal]
  - Dyspepsia [Unknown]
  - Haematuria [Unknown]
